FAERS Safety Report 9360655 (Version 1)
Quarter: 2013Q2

REPORT INFORMATION
  Report Type: Spontaneous
  Country: US (occurrence: None)
  Receive Date: 20130620
  Receipt Date: 20130620
  Transmission Date: 20140414
  Serious: Yes (Other)
  Sender: FDA-Public Use
  Company Number: None

PATIENT
  Age: 62 Year
  Sex: Female

DRUGS (8)
  1. HUMIRA [Suspect]
     Indication: RHEUMATOID ARTHRITIS
     Route: 058
  2. FLAXSEED OIL [Concomitant]
  3. GLUCOSAMINE [Concomitant]
  4. LEVOTHYROXINE [Concomitant]
  5. LYSINE [Concomitant]
  6. METHYLPREDNISOLONE [Concomitant]
  7. PRILOSEC [Concomitant]
  8. VITAMIN D AND E [Concomitant]

REACTIONS (1)
  - Local swelling [None]
